FAERS Safety Report 25771589 (Version 1)
Quarter: 2025Q3

REPORT INFORMATION
  Report Type: Spontaneous
  Country: US (occurrence: US)
  Receive Date: 20250908
  Receipt Date: 20250908
  Transmission Date: 20251020
  Serious: No
  Sender: DOMPE FARMACEUTICI
  Company Number: US-FARMAPROD-202505-1470

PATIENT
  Age: 63 Year
  Sex: Male
  Weight: 116.12 kg

DRUGS (6)
  1. OXERVATE [Suspect]
     Active Substance: CENEGERMIN-BKBJ
     Indication: Neurotrophic keratopathy
     Route: 047
     Dates: start: 20250422
  2. ROSUVASTATIN CALCIUM [Concomitant]
     Active Substance: ROSUVASTATIN CALCIUM
  3. FERROUS SULFATE [Concomitant]
     Active Substance: FERROUS SULFATE
  4. ASPIRIN [Concomitant]
     Active Substance: ASPIRIN
  5. PREDNISONE [Concomitant]
     Active Substance: PREDNISONE
  6. EZETIMIBE [Concomitant]
     Active Substance: EZETIMIBE

REACTIONS (3)
  - Ocular hyperaemia [Not Recovered/Not Resolved]
  - Eyelid function disorder [Unknown]
  - Eye swelling [Unknown]

NARRATIVE: CASE EVENT DATE: 20250502
